FAERS Safety Report 25482091 (Version 1)
Quarter: 2025Q2

REPORT INFORMATION
  Report Type: Report from Study
  Country: ES (occurrence: ES)
  Receive Date: 20250626
  Receipt Date: 20250626
  Transmission Date: 20250716
  Serious: Yes (Hospitalization, Other)
  Sender: NOVARTIS
  Company Number: ES-002147023-NVSC2025ES074474

PATIENT
  Age: 57 Year
  Sex: Male

DRUGS (4)
  1. FABHALTA [Suspect]
     Active Substance: IPTACOPAN HYDROCHLORIDE
     Indication: IgA nephropathy
     Dosage: 200 MG, BID (400 MG)
     Route: 048
     Dates: start: 20250206, end: 20250505
  2. FABHALTA [Suspect]
     Active Substance: IPTACOPAN HYDROCHLORIDE
     Indication: Disease recurrence
     Route: 048
     Dates: end: 20250506
  3. CEFTRIAXONE [Concomitant]
     Active Substance: CEFTRIAXONE
     Indication: Product used for unknown indication
     Route: 065
     Dates: start: 20250502
  4. TACROLIMUS [Concomitant]
     Active Substance: TACROLIMUS
     Indication: Product used for unknown indication
     Route: 065

REACTIONS (5)
  - Infectious pleural effusion [Recovered/Resolved]
  - Pneumonia haemophilus [Recovering/Resolving]
  - Chest pain [Unknown]
  - Influenza like illness [Unknown]
  - Immunosuppression [Unknown]

NARRATIVE: CASE EVENT DATE: 20250502
